FAERS Safety Report 8958207 (Version 1)
Quarter: 2012Q4

REPORT INFORMATION
  Report Type: 
  Country: MX (occurrence: MX)
  Receive Date: 20121211
  Receipt Date: 20121211
  Transmission Date: 20130627
  Serious: Yes (Death)
  Sender: FDA-Public Use
  Company Number: PHHY2012MX113525

PATIENT
  Age: 79 Year
  Sex: Female

DRUGS (1)
  1. ONBREZ [Suspect]
     Indication: ASTHMA
     Dosage: 300 ug, QD
     Route: 048
     Dates: start: 20120913

REACTIONS (3)
  - Death [Fatal]
  - Off label use [Unknown]
  - Incorrect route of drug administration [Unknown]
